FAERS Safety Report 9617828 (Version 1)
Quarter: 2013Q4

REPORT INFORMATION
  Report Type: Report from Study
  Country: US (occurrence: US)
  Receive Date: 20131011
  Receipt Date: 20131011
  Transmission Date: 20140711
  Serious: Yes (Hospitalization)
  Sender: FDA-Public Use
  Company Number: US-BRISTOL-MYERS SQUIBB COMPANY-19492990

PATIENT
  Age: 69 Year
  Sex: Female

DRUGS (10)
  1. PACLITAXEL [Suspect]
     Indication: NON-SMALL CELL LUNG CANCER
     Dosage: RECENT DOSE:28AUG2013 290MG
     Route: 042
     Dates: start: 20130807
  2. CARBOPLATIN [Suspect]
     Indication: NON-SMALL CELL LUNG CANCER
     Dosage: RECENT DOSE:28AUG2013 445MG
     Route: 042
     Dates: start: 20130807
  3. BEVACIZUMAB [Suspect]
     Indication: NON-SMALL CELL LUNG CANCER
     Dosage: RECENT DOSE:28AUG2013 700MG
     Route: 042
     Dates: start: 20130808
  4. ALPRAZOLAM [Concomitant]
     Indication: INSOMNIA
     Dosage: 1 DF:0.5 DF
     Route: 048
     Dates: start: 2012
  5. ADVIL PM [Concomitant]
     Indication: INSOMNIA
     Dosage: TABS
     Route: 048
     Dates: start: 2002
  6. AMBIEN CR [Concomitant]
     Indication: INSOMNIA
     Route: 048
     Dates: start: 20130731
  7. DIOVAN [Concomitant]
     Indication: HYPERTENSION
     Route: 048
     Dates: start: 1997
  8. LEVOTHYROXINE [Concomitant]
     Indication: HYPOTHYROIDISM
     Route: 048
     Dates: start: 1997
  9. MEGESTROL [Concomitant]
     Indication: DECREASED APPETITE
     Route: 048
     Dates: start: 2012
  10. ZOLOFT [Concomitant]
     Indication: DEPRESSION
     Route: 048
     Dates: start: 2012

REACTIONS (1)
  - Gastroenteritis [Recovering/Resolving]
